FAERS Safety Report 5447448-4 (Version None)
Quarter: 2007Q3

REPORT INFORMATION
  Report Type: 
  Country: None (occurrence: None)
  Receive Date: 20070905
  Receipt Date: 20070820
  Transmission Date: 20080115
  Serious: Yes (Life-Threatening)
  Sender: FDA-Public Use
  Company Number: 8026250

PATIENT
  Age: 71 Year
  Sex: Female
  Weight: 74 kg

DRUGS (9)
  1. KEPPRA [Suspect]
     Dosage: 1250 MG 2/D PO
     Route: 048
  2. FLUCLOXACILLIN [Suspect]
  3. AMLODIPINE MALEATE [Concomitant]
  4. ATENOLOL [Concomitant]
  5. CALCIUM CARBONATE [Concomitant]
  6. CO-CODAMOL [Concomitant]
  7. DIPROBASE [Concomitant]
  8. FERROUS SULFATE TAB [Concomitant]
  9. WARFARIN SODIUM [Concomitant]

REACTIONS (3)
  - DRUG INTERACTION [None]
  - DRUG LEVEL DECREASED [None]
  - PETIT MAL EPILEPSY [None]
